FAERS Safety Report 8073823-8 (Version None)
Quarter: 2012Q1

REPORT INFORMATION
  Report Type: 
  Country: None (occurrence: None)
  Receive Date: 20120126
  Receipt Date: 20120117
  Transmission Date: 20120608
  Serious: Yes (Death, Life-Threatening, Hospitalization)
  Sender: FDA-Public Use
  Company Number: JP-ROCHE-1032630

PATIENT
  Sex: Female
  Weight: 61.9 kg

DRUGS (17)
  1. RABEPRAZOLE SODIUM [Concomitant]
     Route: 048
     Dates: start: 20051224, end: 20060110
  2. TACROLIMUS [Suspect]
     Indication: PROPHYLAXIS AGAINST TRANSPLANT REJECTION
     Dosage: 0.6-3MG/DAY
     Route: 048
     Dates: start: 20051214, end: 20060110
  3. NEUART [Concomitant]
     Route: 042
     Dates: start: 20051214, end: 20051217
  4. MYCOPHENOLATE MOFETIL (CELLCEPT) [Suspect]
     Route: 048
     Dates: start: 20060109, end: 20060109
  5. METHYLPREDNISOLONE SODIUM SUCCINATE [Suspect]
     Indication: PROPHYLAXIS AGAINST TRANSPLANT REJECTION
     Dosage: DOSE: 40-500MG/DAY
     Route: 042
     Dates: start: 20051223, end: 20051228
  6. MYCOPHENOLATE MOFETIL (CELLCEPT) [Suspect]
     Route: 048
     Dates: start: 20051230, end: 20060108
  7. FUNGUARD [Concomitant]
     Route: 042
     Dates: start: 20051214, end: 20051224
  8. PLETAL [Concomitant]
     Route: 048
     Dates: start: 20051227, end: 20060110
  9. URSO 250 [Concomitant]
     Dosage: 300-600MG/DAY
     Route: 048
     Dates: start: 20051214, end: 20060110
  10. MYCOPHENOLATE MOFETIL (CELLCEPT) [Suspect]
     Indication: PROPHYLAXIS AGAINST TRANSPLANT REJECTION
     Route: 048
     Dates: start: 20051214, end: 20051222
  11. MYCOPHENOLATE MOFETIL (CELLCEPT) [Suspect]
     Route: 048
     Dates: start: 20051223, end: 20051229
  12. PREDNISOLONE [Suspect]
     Indication: PROPHYLAXIS AGAINST TRANSPLANT REJECTION
     Route: 048
  13. OMEPRAZOLE [Concomitant]
     Route: 042
     Dates: start: 20051214, end: 20051223
  14. FLUMARIN [Concomitant]
     Route: 042
     Dates: start: 20051214, end: 20051218
  15. GANCICLOVIR [Concomitant]
     Dates: start: 20051214, end: 20051223
  16. MYCOPHENOLATE MOFETIL (CELLCEPT) [Suspect]
     Route: 048
     Dates: start: 20060110, end: 20060110
  17. SULFAMETHOXAZOLE [Concomitant]
     Dosage: 0-400MG/DAY
     Route: 048
     Dates: start: 20051214, end: 20060110

REACTIONS (3)
  - RESPIRATORY FAILURE [None]
  - RENAL FAILURE [None]
  - PNEUMONIA [None]
